FAERS Safety Report 5902413-5 (Version None)
Quarter: 2008Q3

REPORT INFORMATION
  Report Type: 
  Country: None (occurrence: None)
  Receive Date: 20080929
  Receipt Date: 20080926
  Transmission Date: 20090109
  Serious: Yes (Death, Hospitalization)
  Sender: FDA-Public Use
  Company Number: US-ASTRAZENECA-2008UW20527

PATIENT
  Age: 55 Year
  Sex: Male

DRUGS (2)
  1. NEXIUM [Suspect]
     Indication: GASTROOESOPHAGEAL REFLUX DISEASE
     Route: 048
  2. LARGE DOSES OF STEROIDS [Concomitant]

REACTIONS (2)
  - BACK PAIN [None]
  - PNEUMONIA [None]
